FAERS Safety Report 9038713 (Version 1)
Quarter: 2013Q1

REPORT INFORMATION
  Report Type: Spontaneous
  Country: US (occurrence: None)
  Receive Date: 20130123
  Receipt Date: 20130123
  Transmission Date: 20140127
  Serious: Yes (Life-Threatening)
  Sender: FDA-Public Use
  Company Number: None

PATIENT
  Age: 32 Year
  Sex: Female
  Weight: 90 kg

DRUGS (2)
  1. ONDANSETRON [Suspect]
     Indication: NAUSEA
     Route: 042
     Dates: start: 20130102
  2. ONDANSETRON [Suspect]
     Indication: VOMITING
     Route: 042
     Dates: start: 20130102

REACTIONS (2)
  - Ventricular fibrillation [None]
  - No reaction on previous exposure to drug [None]
